FAERS Safety Report 6395395-6 (Version None)
Quarter: 2009Q4

REPORT INFORMATION
  Report Type: 
  Country: None (occurrence: None)
  Receive Date: 20091009
  Receipt Date: 20090930
  Transmission Date: 20100525
  Serious: No
  Sender: FDA-Public Use
  Company Number: US-ELI_LILLY_AND_COMPANY-US200909001693

PATIENT
  Sex: Male

DRUGS (18)
  1. HUMALOG [Suspect]
     Dosage: UNK, AS NEEDED
     Dates: start: 20080101
  2. PLAVIX [Concomitant]
  3. ASPIRIN [Concomitant]
  4. METOPROLOL SUCCINATE [Concomitant]
  5. ZETIA [Concomitant]
  6. SYNTHROID [Concomitant]
  7. NIASPAN [Concomitant]
  8. NASONEX [Concomitant]
  9. FUROSEMIDE [Concomitant]
  10. DIOVAN [Concomitant]
  11. AMBIEN [Concomitant]
  12. VITAMIN D [Concomitant]
     Dosage: 50000 IU, WEEKLY (1/W)
  13. SALIX [Concomitant]
  14. LISINOPRIL [Concomitant]
  15. SPIRONOLACTONE [Concomitant]
  16. OMEPRAZOLE [Concomitant]
  17. LANTUS [Concomitant]
  18. CRESTOR [Concomitant]

REACTIONS (3)
  - BLOOD GLUCOSE DECREASED [None]
  - CONSTIPATION [None]
  - HYPOACUSIS [None]
